FAERS Safety Report 13255709 (Version 1)
Quarter: 2017Q1

REPORT INFORMATION
  Report Type: Spontaneous
  Country: TW (occurrence: TW)
  Receive Date: 20170221
  Receipt Date: 20170221
  Transmission Date: 20170428
  Serious: Yes (Hospitalization)
  Sender: FDA-Public Use
  Company Number: TW-STRIDES ARCOLAB LIMITED-2017SP002652

PATIENT

DRUGS (1)
  1. VANCOMYCIN [Suspect]
     Active Substance: VANCOMYCIN
     Indication: PRODUCT USED FOR UNKNOWN INDICATION
     Dosage: UNK

REACTIONS (8)
  - Purpura [Unknown]
  - Face oedema [Unknown]
  - Lymphocyte morphology abnormal [Unknown]
  - Hepatic enzyme increased [Unknown]
  - Drug reaction with eosinophilia and systemic symptoms [Unknown]
  - Skin exfoliation [Unknown]
  - Rash generalised [Unknown]
  - Eosinophilia [Unknown]
